FAERS Safety Report 12772731 (Version 5)
Quarter: 2018Q1

REPORT INFORMATION
  Report Type: Report from Study
  Country: None (occurrence: US)
  Receive Date: 20160922
  Receipt Date: 20180329
  Transmission Date: 20180508
  Serious: Yes (Death, Life-Threatening, Hospitalization)
  Sender: FDA-Public Use
  Company Number: US-ABBVIE-16P-163-1717353-00

PATIENT
  Age: 80 Year
  Sex: Male
  Weight: 77 kg

DRUGS (13)
  1. DECITABINE. [Suspect]
     Active Substance: DECITABINE
     Indication: ACUTE MYELOID LEUKAEMIA
     Dosage: DAYS 1 - 5 OF ALL CYCLES, CYCLE=28 DAYS
     Route: 042
     Dates: start: 20160223, end: 20160809
  2. LEVOTHYROXINE. [Concomitant]
     Active Substance: LEVOTHYROXINE
     Indication: HYPOTHYROIDISM
     Route: 048
     Dates: start: 2015
  3. VENETOCLAX. [Suspect]
     Active Substance: VENETOCLAX
     Dosage: CYCLE 1 OF 28 DAY CYCLE
     Route: 048
     Dates: start: 20160225, end: 20160225
  4. VENETOCLAX. [Suspect]
     Active Substance: VENETOCLAX
     Indication: ACUTE MYELOID LEUKAEMIA
     Dosage: CYCLE 1 OF 28 DAY CYCLE
     Route: 048
     Dates: start: 20160223, end: 20160223
  5. VENETOCLAX. [Suspect]
     Active Substance: VENETOCLAX
     Dosage: CYCLE 1 OF 28 DAY CYCLE
     Route: 048
     Dates: start: 20160224, end: 20160224
  6. VENETOCLAX. [Suspect]
     Active Substance: VENETOCLAX
     Dosage: CYCLES 2-7 OF 28 DAY CYCLE
     Route: 048
     Dates: start: 20160226, end: 20160818
  7. LISINOPRIL. [Concomitant]
     Active Substance: LISINOPRIL
     Route: 048
     Dates: start: 20160308
  8. BENAZEPRIL [Concomitant]
     Active Substance: BENAZEPRIL HYDROCHLORIDE
     Indication: HYPERTENSION
     Route: 048
     Dates: start: 20160711
  9. ACYCLOVIR. [Concomitant]
     Active Substance: ACYCLOVIR
     Indication: ANTIFUNGAL PROPHYLAXIS
     Route: 048
     Dates: start: 20160229
  10. ASPIRIN. [Concomitant]
     Active Substance: ASPIRIN
     Indication: ANTIPLATELET THERAPY
     Route: 048
     Dates: start: 20160222
  11. ASPIRIN. [Concomitant]
     Active Substance: ASPIRIN
     Indication: COAGULOPATHY
  12. LISINOPRIL. [Concomitant]
     Active Substance: LISINOPRIL
     Indication: HYPERTENSION
     Route: 048
     Dates: start: 2015, end: 20160307
  13. AMITRIPTYLINE [Concomitant]
     Active Substance: AMITRIPTYLINE
     Indication: DEPRESSION
     Route: 048
     Dates: start: 20160221

REACTIONS (5)
  - Fall [Recovered/Resolved]
  - Pneumonia [Not Recovered/Not Resolved]
  - Septic shock [Recovered/Resolved]
  - Pneumonia [Fatal]
  - Acute respiratory failure [Recovered/Resolved]

NARRATIVE: CASE EVENT DATE: 20160828
